FAERS Safety Report 6213573-3 (Version None)
Quarter: 2009Q2

REPORT INFORMATION
  Report Type: 
  Country: None (occurrence: None)
  Receive Date: 20090603
  Receipt Date: 20090526
  Transmission Date: 20091009
  Serious: Yes (Other)
  Sender: FDA-Public Use
  Company Number: GB-ABBOTT-09P-167-0575692-00

PATIENT
  Age: 41 Year
  Sex: Female

DRUGS (4)
  1. EPILIM [Suspect]
     Indication: EPILEPSY
     Route: 048
  2. LAMOTRIGINE [Concomitant]
     Indication: DRUG USE FOR UNKNOWN INDICATION
  3. LEVETIRACETAM [Concomitant]
     Indication: DRUG USE FOR UNKNOWN INDICATION
  4. PHENYTOIN [Concomitant]
     Indication: DRUG USE FOR UNKNOWN INDICATION

REACTIONS (2)
  - CONVULSION [None]
  - MALABSORPTION [None]
